FAERS Safety Report 4407494-6 (Version None)
Quarter: 2004Q3

REPORT INFORMATION
  Report Type: 
  Country: None (occurrence: None)
  Receive Date: 20040721
  Receipt Date: 20040709
  Transmission Date: 20050211
  Serious: Yes (Hospitalization)
  Sender: FDA-Public Use
  Company Number: ZONI001461

PATIENT
  Age: 47 Year
  Sex: Female

DRUGS (5)
  1. EXCEGRAN (ZONISAMIDE) [Suspect]
     Indication: CONVULSION PROPHYLAXIS
     Dosage: 200 MG DAILY ORAL
     Route: 048
     Dates: start: 20040430, end: 20040511
  2. PHENOBARBITAL TAB [Suspect]
     Indication: CONVULSION PROPHYLAXIS
     Dosage: 200 MG DAILY
     Dates: start: 20040430, end: 20040510
  3. VOLTAREN [Suspect]
     Indication: PYREXIA
     Dosage: 25 MG DAILY RECTAL
     Route: 054
     Dates: start: 20040510, end: 20040522
  4. VALPROATE SODIUM [Concomitant]
  5. FLOMOX (CEFCAPENE PIVOXIL HYDROCHLORIDE) [Concomitant]

REACTIONS (2)
  - PYREXIA [None]
  - RASH [None]
